FAERS Safety Report 7098688-2 (Version None)
Quarter: 2010Q4

REPORT INFORMATION
  Report Type: 
  Country: None (occurrence: None)
  Receive Date: 20101112
  Receipt Date: 20080305
  Transmission Date: 20110411
  Serious: No
  Sender: FDA-Public Use
  Company Number: US-KINGPHARMUSA00001-K200800285

PATIENT

DRUGS (1)
  1. THROMBIN-JMI [Suspect]
     Dosage: UNK
     Route: 042
     Dates: start: 20080305, end: 20080305

REACTIONS (2)
  - INCORRECT ROUTE OF DRUG ADMINISTRATION [None]
  - NO ADVERSE EVENT [None]
